FAERS Safety Report 13422604 (Version 3)
Quarter: 2017Q2

REPORT INFORMATION
  Report Type: Spontaneous
  Country: US (occurrence: US)
  Receive Date: 20170410
  Receipt Date: 20170512
  Transmission Date: 20170830
  Serious: Yes (Other)
  Sender: FDA-Public Use
  Company Number: US-TEVA-758022USA

PATIENT
  Age: 49 Year
  Sex: Male

DRUGS (4)
  1. KETOROLAC TROMETHAMINE. [Concomitant]
     Active Substance: KETOROLAC TROMETHAMINE
  2. MONTELUKAST [Suspect]
     Active Substance: MONTELUKAST SODIUM
     Route: 065
     Dates: start: 20160518
  3. MONTELUKAST [Suspect]
     Active Substance: MONTELUKAST SODIUM
     Route: 065
     Dates: start: 20160505
  4. AZELASTINE HYDROCHLORIDE. [Concomitant]
     Active Substance: AZELASTINE HYDROCHLORIDE

REACTIONS (2)
  - Blood pressure increased [Recovered/Resolved]
  - Conjunctival haemorrhage [Recovered/Resolved]

NARRATIVE: CASE EVENT DATE: 20160510
